FAERS Safety Report 6215301-4 (Version None)
Quarter: 2009Q2

REPORT INFORMATION
  Report Type: 
  Country: None (occurrence: None)
  Receive Date: 20090604
  Receipt Date: 20090521
  Transmission Date: 20091009
  Serious: Yes (Hospitalization, Other)
  Sender: FDA-Public Use
  Company Number: PHHY2009VE18500

PATIENT
  Age: 57 Year
  Sex: Female
  Weight: 58 kg

DRUGS (5)
  1. EXJADE [Suspect]
     Indication: IRON OVERLOAD
     Dosage: 1000 MG, QD
     Route: 048
     Dates: start: 20060626
  2. EXJADE [Suspect]
     Dosage: 13MG/KG/DOSE
     Dates: start: 20081008
  3. EXJADE [Suspect]
     Dosage: 1000MG/DAILY
     Dates: start: 20090101
  4. FOLIC ACID [Concomitant]
     Indication: HAEMOLYTIC ANAEMIA
     Dosage: 10MG/DAILY
  5. NSAID'S [Concomitant]
     Indication: PAIN
     Dosage: 400MG

REACTIONS (8)
  - ANOREXIA [None]
  - CHOLELITHIASIS [None]
  - HEPATITIS [None]
  - HYPERBILIRUBINAEMIA [None]
  - JAUNDICE [None]
  - LIVER DISORDER [None]
  - NAUSEA [None]
  - TRANSAMINASES INCREASED [None]
